FAERS Safety Report 6575774-4 (Version None)
Quarter: 2010Q1

REPORT INFORMATION
  Report Type: 
  Country: None (occurrence: None)
  Receive Date: 20100208
  Receipt Date: 20100208
  Transmission Date: 20100710
  Serious: No
  Sender: FDA-Public Use
  Company Number: None

PATIENT
  Age: 54 Year
  Sex: Female
  Weight: 65.7716 kg

DRUGS (1)
  1. CARISOPRODOL [Suspect]
     Indication: MUSCLE SPASMS
     Dates: start: 20100204, end: 20100204

REACTIONS (16)
  - APHASIA [None]
  - ATAXIA [None]
  - BURNING SENSATION [None]
  - DISTURBANCE IN ATTENTION [None]
  - DRUG INEFFECTIVE [None]
  - DRY MOUTH [None]
  - DYSGEUSIA [None]
  - DYSKINESIA [None]
  - EYE MOVEMENT DISORDER [None]
  - FEAR [None]
  - MOVEMENT DISORDER [None]
  - NEURALGIA [None]
  - PALPITATIONS [None]
  - SPEECH DISORDER [None]
  - VISION BLURRED [None]
  - VISUAL IMPAIRMENT [None]
